FAERS Safety Report 6866202-X (Version None)
Quarter: 2010Q2

REPORT INFORMATION
  Report Type: 
  Country: None (occurrence: None)
  Receive Date: 20100601
  Receipt Date: 20100517
  Transmission Date: 20101027
  Serious: No
  Sender: FDA-Public Use
  Company Number: 2010-00454

PATIENT
  Age: 56 Year
  Sex: Male
  Weight: 108.8633 kg

DRUGS (10)
  1. ZICAM COLD REMEDY GEL SWABS [Suspect]
     Dosage: QID, ^A FEW DAYS^
     Dates: start: 20100401
  2. ZICAM COUGH MAX [Suspect]
     Dosage: BID, ^A FEW DAYS^
     Dates: start: 20100401
  3. ZICAM COLD REMEDY ORAL MIST [Suspect]
     Dosage: QID X ^A FEW DAYS^
     Dates: start: 20100401
  4. VITAMIN C COUGH DROPS [Concomitant]
  5. ALLEGRA [Concomitant]
  6. PREDNISONE [Concomitant]
  7. BIAXIN [Concomitant]
  8. ANTIFUNGAL PILL [Concomitant]
  9. NASAL SALINE SOLUTION [Concomitant]
  10. VICK'S [Concomitant]

REACTIONS (3)
  - AGEUSIA [None]
  - ANOSMIA [None]
  - APHONIA [None]
